FAERS Safety Report 19576807 (Version 14)
Quarter: 2025Q4

REPORT INFORMATION
  Report Type: Report from Study
  Country: US (occurrence: US)
  Receive Date: 20210719
  Receipt Date: 20251230
  Transmission Date: 20260117
  Serious: Yes (Other)
  Sender: INSMED
  Company Number: None

PATIENT
  Sex: Female

DRUGS (12)
  1. ARIKAYCE [Suspect]
     Active Substance: AMIKACIN
     Indication: Mycobacterium avium complex infection
     Dosage: 590 MILLIGRAM, QD
     Route: 055
     Dates: start: 20201030, end: 20201030
  2. ARIKAYCE [Suspect]
     Active Substance: AMIKACIN
     Dosage: 590 MILLIGRAM, UNK
     Route: 055
     Dates: start: 2020, end: 20201108
  3. ARIKAYCE [Suspect]
     Active Substance: AMIKACIN
     Dosage: 590 MILLIGRAM, QD
     Route: 055
     Dates: end: 2021
  4. ARIKAYCE [Suspect]
     Active Substance: AMIKACIN
     Dosage: 590 MILLIGRAM, TIW
     Route: 055
     Dates: start: 2021, end: 2021
  5. ARIKAYCE [Suspect]
     Active Substance: AMIKACIN
     Dosage: 590 MILLIGRAM, TIW
     Route: 055
     Dates: start: 20211222, end: 20220801
  6. MULTI VITAMIN [ASCORBIC ACID;COLECALCIFEROL;NICOTINAMIDE;PANTHENOL;PYR [Concomitant]
     Indication: Product used for unknown indication
     Dosage: UNK, UNK
     Route: 065
  7. VITAMIN D3 [Concomitant]
     Active Substance: CHOLECALCIFEROL
     Indication: Product used for unknown indication
     Dosage: UNK, UNK
     Route: 065
  8. ETHAMBUTOL [Concomitant]
     Active Substance: ETHAMBUTOL HYDROCHLORIDE
     Indication: Product used for unknown indication
     Dosage: UNK, UNK
     Route: 065
  9. RIFAMPIN [Concomitant]
     Active Substance: RIFAMPIN
     Indication: Product used for unknown indication
     Dosage: UNK, UNK
     Route: 065
  10. CLOFAZIMINE [Concomitant]
     Active Substance: CLOFAZIMINE
     Indication: Product used for unknown indication
     Dosage: UNK, UNK
     Route: 065
  11. SYNTHROID [Concomitant]
     Active Substance: LEVOTHYROXINE SODIUM
     Indication: Product used for unknown indication
     Dosage: UNK, UNK
     Route: 065
  12. CRESTOR [Concomitant]
     Active Substance: ROSUVASTATIN CALCIUM
     Indication: Product used for unknown indication
     Dosage: UNK, UNK
     Route: 065

REACTIONS (21)
  - Pulmonary haemorrhage [Unknown]
  - Somnolence [Unknown]
  - Gastrooesophageal reflux disease [Unknown]
  - Bowel movement irregularity [Unknown]
  - Hypersomnia [Unknown]
  - Secretion discharge [Unknown]
  - Gastrointestinal disorder [Unknown]
  - Flushing [Unknown]
  - Sputum discoloured [Unknown]
  - Decreased appetite [Unknown]
  - Dysgeusia [Recovered/Resolved]
  - Laryngitis [Recovered/Resolved]
  - Weight decreased [Recovering/Resolving]
  - Pyrexia [Unknown]
  - Haemoptysis [Recovered/Resolved]
  - Nausea [Unknown]
  - Dizziness [Unknown]
  - Illness [Recovering/Resolving]
  - Unevaluable event [Unknown]
  - Off label use [Unknown]
  - Product dose omission issue [Unknown]

NARRATIVE: CASE EVENT DATE: 20200101
